FAERS Safety Report 16188364 (Version 1)
Quarter: 2019Q2

REPORT INFORMATION
  Report Type: Spontaneous
  Country: PT (occurrence: PT)
  Receive Date: 20190412
  Receipt Date: 20190412
  Transmission Date: 20190711
  Serious: Yes (Death, Other)
  Sender: FDA-Public Use
  Company Number: PT-AUROBINDO-AUR-APL-2019-018947

PATIENT

DRUGS (5)
  1. ALBUMINA [Suspect]
     Active Substance: ALBUMIN HUMAN
     Indication: PRODUCT USED FOR UNKNOWN INDICATION
     Dosage: UNK
     Route: 065
  2. METHYLPREDNISOLONE. [Suspect]
     Active Substance: METHYLPREDNISOLONE
     Indication: PRODUCT USED FOR UNKNOWN INDICATION
     Dosage: UNK
     Route: 065
     Dates: start: 20181116, end: 20190121
  3. AMBISOME [Suspect]
     Active Substance: AMPHOTERICIN B
     Indication: MUCORMYCOSIS
     Dosage: 400 MG; 1 ID
     Route: 065
     Dates: start: 20181121, end: 20190121
  4. CEFTRIAXONE. [Suspect]
     Active Substance: CEFTRIAXONE
     Indication: PRODUCT USED FOR UNKNOWN INDICATION
     Dosage: UNK
     Route: 065
     Dates: start: 20181116, end: 20190120
  5. METRONIDAZOLE. [Suspect]
     Active Substance: METRONIDAZOLE
     Indication: PRODUCT USED FOR UNKNOWN INDICATION
     Dosage: UNK
     Route: 065
     Dates: start: 20181116, end: 20190121

REACTIONS (8)
  - Carotid artery disease [Unknown]
  - Oedema [Unknown]
  - Hypoalbuminaemia [Unknown]
  - Sinusitis [Unknown]
  - Systemic mycosis [Fatal]
  - Cerebrovascular accident [Fatal]
  - Mucormycosis [Fatal]
  - Carotid artery insufficiency [Not Recovered/Not Resolved]
